FAERS Safety Report 24172441 (Version 2)
Quarter: 2024Q3

REPORT INFORMATION
  Report Type: Report from Study
  Country: FR (occurrence: FR)
  Receive Date: 20240805
  Receipt Date: 20240813
  Transmission Date: 20241016
  Serious: Yes (Life-Threatening)
  Sender: SERVIER
  Company Number: FR-SERVIER-S24009454

PATIENT

DRUGS (6)
  1. PEGASPARGASE [Suspect]
     Active Substance: PEGASPARGASE
     Indication: Acute lymphocytic leukaemia
     Dosage: 2500 IU/M2
     Route: 065
     Dates: start: 20211118, end: 20211122
  2. PEGASPARGASE [Suspect]
     Active Substance: PEGASPARGASE
     Dosage: 3750 IU, D6
     Route: 065
     Dates: start: 20211123, end: 20211123
  3. DEXAMETHASONE [Suspect]
     Active Substance: DEXAMETHASONE
     Indication: Acute lymphocytic leukaemia
     Dosage: 20 MG/M2, QD, D1 TO D5, THEN 10 MG/M2, QD D6
     Route: 065
     Dates: start: 20211118
  4. CYTARABINE [Suspect]
     Active Substance: CYTARABINE
     Indication: Acute lymphocytic leukaemia
     Dosage: 3200 MG, D1 AND D2
     Route: 048
     Dates: start: 20211118, end: 20211119
  5. MITOXANTRONE [Suspect]
     Active Substance: MITOXANTRONE HYDROCHLORIDE
     Indication: Acute lymphocytic leukaemia
     Dosage: 8 MG/M2, D3 AND D4
     Route: 065
     Dates: start: 20211118
  6. ETOPOSIDE [Suspect]
     Active Substance: ETOPOSIDE
     Indication: Acute lymphocytic leukaemia
     Dosage: 150 MG/M2, D3, D4, D5
     Route: 065
     Dates: start: 20211118

REACTIONS (2)
  - Staphylococcal sepsis [Not Recovered/Not Resolved]
  - Anaphylactic shock [Not Recovered/Not Resolved]

NARRATIVE: CASE EVENT DATE: 20211123
